FAERS Safety Report 7132116-3 (Version None)
Quarter: 2010Q4

REPORT INFORMATION
  Report Type: 
  Country: None (occurrence: None)
  Receive Date: 20101202
  Receipt Date: 20101027
  Transmission Date: 20110411
  Serious: No
  Sender: FDA-Public Use
  Company Number: GT-SANOFI-AVENTIS-2010SA066353

PATIENT
  Age: 22 Year
  Sex: Female
  Weight: 59 kg

DRUGS (3)
  1. ARAVA [Suspect]
     Indication: ARTHRITIS
     Route: 048
     Dates: start: 20080101, end: 20101004
  2. METOTREXATE [Suspect]
     Indication: ARTHRITIS
     Route: 048
     Dates: start: 20080101, end: 20101004
  3. METICORTEN [Suspect]
     Indication: ARTHRITIS
     Route: 048
     Dates: start: 20080101

REACTIONS (2)
  - DRUG EXPOSURE DURING PREGNANCY [None]
  - PREGNANCY [None]
